FAERS Safety Report 21636815 (Version 2)
Quarter: 2023Q2

REPORT INFORMATION
  Report Type: Report from Study
  Country: US (occurrence: US)
  Receive Date: 20221124
  Receipt Date: 20230517
  Transmission Date: 20230722
  Serious: No
  Sender: FDA-Public Use
  Company Number: US-SA-SAC20221123000138

PATIENT
  Age: 11 Year
  Sex: Female
  Weight: 181.2 kg

DRUGS (4)
  1. DUPIXENT [Suspect]
     Active Substance: DUPILUMAB
     Indication: Dermatitis atopic
     Dosage: 400 MG, 1X
     Route: 058
     Dates: start: 20221108, end: 20221108
  2. DUPIXENT [Suspect]
     Active Substance: DUPILUMAB
     Dosage: 200 MG, QOW
     Route: 058
  3. ALBUTEROL SULFATE [Concomitant]
     Active Substance: ALBUTEROL SULFATE
  4. FLOVENT [Concomitant]
     Active Substance: FLUTICASONE PROPIONATE

REACTIONS (10)
  - Skin haemorrhage [Unknown]
  - Sleep disorder [Unknown]
  - Dry skin [Unknown]
  - Skin fissures [Unknown]
  - Skin exfoliation [Unknown]
  - Sinusitis [Unknown]
  - Pruritus [Unknown]
  - Fear of injection [Unknown]
  - Nasopharyngitis [Unknown]
  - Eczema [Unknown]

NARRATIVE: CASE EVENT DATE: 20221114
